FAERS Safety Report 8112556-6 (Version None)
Quarter: 2012Q1

REPORT INFORMATION
  Report Type: 
  Country: None (occurrence: None)
  Receive Date: 20120203
  Receipt Date: 20120201
  Transmission Date: 20120608
  Serious: Yes (Other)
  Sender: FDA-Public Use
  Company Number: US-BAYER-2012-010795

PATIENT
  Sex: Female

DRUGS (1)
  1. MAGNESIUM HYDROXIDE TAB [Suspect]
     Indication: PRODUCT USED FOR UNKNOWN INDICATION
     Dosage: 1 DF, ONCE
     Route: 048
     Dates: start: 20120130, end: 20120130

REACTIONS (2)
  - FAECES DISCOLOURED [None]
  - ULCER HAEMORRHAGE [None]
